FAERS Safety Report 7561139-5 (Version None)
Quarter: 2011Q2

REPORT INFORMATION
  Report Type: 
  Country: None (occurrence: None)
  Receive Date: 20110617
  Receipt Date: 20110617
  Transmission Date: 20111010
  Serious: No
  Sender: FDA-Public Use
  Company Number: None

PATIENT
  Age: 41 Year
  Sex: Female
  Weight: 95 kg

DRUGS (1)
  1. STERILE WATER FOR INJECTION [Suspect]

REACTIONS (3)
  - FEELING COLD [None]
  - HEADACHE [None]
  - NAUSEA [None]
